FAERS Safety Report 14874743 (Version 1)
Quarter: 2018Q2

REPORT INFORMATION
  Report Type: Spontaneous
  Country: JP (occurrence: JP)
  Receive Date: 20180510
  Receipt Date: 20180510
  Transmission Date: 20180711
  Serious: Yes (Hospitalization, Other)
  Sender: FDA-Public Use
  Company Number: JP-009507513-1803JPN000521J

PATIENT
  Age: 61 Year
  Sex: Male
  Weight: 43 kg

DRUGS (8)
  1. NEXIUM [Concomitant]
     Active Substance: ESOMEPRAZOLE MAGNESIUM
     Indication: PROPHYLAXIS
     Dosage: 20 MG, QD
     Route: 048
     Dates: start: 20171205
  2. KEYTRUDA [Suspect]
     Active Substance: PEMBROLIZUMAB
     Indication: ADENOSQUAMOUS CELL LUNG CANCER
     Dosage: 200 MG, Q3W
     Route: 041
     Dates: start: 20180105, end: 20180126
  3. NOVORAPID [Concomitant]
     Active Substance: INSULIN ASPART
     Dosage: 6 DF, TID
     Route: 058
     Dates: end: 20180206
  4. NOVORAPID [Concomitant]
     Active Substance: INSULIN ASPART
     Dosage: 10 DF, TID
     Route: 058
     Dates: start: 20180207
  5. TRESIBA [Concomitant]
     Active Substance: INSULIN DEGLUDEC
     Dosage: 4 DF, QD
     Route: 058
     Dates: end: 20180206
  6. FEXOFENADINE HYDROCHLORIDE. [Concomitant]
     Active Substance: FEXOFENADINE HYDROCHLORIDE
     Indication: PROPHYLAXIS
     Dosage: 60 MG, BID
     Route: 048
     Dates: start: 20180126, end: 20180319
  7. TRESIBA [Concomitant]
     Active Substance: INSULIN DEGLUDEC
     Dosage: 8 DF, UNK
     Route: 058
     Dates: start: 20180207
  8. CALONAL [Concomitant]
     Active Substance: ACETAMINOPHEN
     Indication: ADENOSQUAMOUS CELL LUNG CANCER
     Dosage: 500 MG, TID
     Route: 048
     Dates: start: 20171106

REACTIONS (1)
  - Cholangitis sclerosing [Not Recovered/Not Resolved]

NARRATIVE: CASE EVENT DATE: 20180216
